FAERS Safety Report 8124405-0 (Version None)
Quarter: 2012Q1

REPORT INFORMATION
  Report Type: 
  Country: None (occurrence: None)
  Receive Date: 20120209
  Receipt Date: 20120206
  Transmission Date: 20120608
  Serious: Yes (Hospitalization)
  Sender: FDA-Public Use
  Company Number: US-B.I. PHARMACEUTICALS,INC./RIDGEFIELD-2012-BP-01240BP

PATIENT
  Age: 77 Year
  Sex: Male

DRUGS (13)
  1. IMDUR [Concomitant]
  2. ARICEPT [Concomitant]
  3. AMARYL [Concomitant]
  4. LASIX [Concomitant]
  5. PRILOSEC [Concomitant]
  6. FLEXERIL [Concomitant]
  7. POTASSIUM [Concomitant]
  8. LANOXIN [Concomitant]
  9. CARVEDILOL [Concomitant]
  10. CELEBREX [Concomitant]
  11. PRADAXA [Suspect]
     Indication: ATRIAL FIBRILLATION
     Dosage: 300 MG
     Route: 048
     Dates: start: 20111101, end: 20120101
  12. LEVEMIR [Concomitant]
  13. COZAAR [Concomitant]

REACTIONS (1)
  - PULMONARY EMBOLISM [None]
